FAERS Safety Report 18731470 (Version 1)
Quarter: 2021Q1

REPORT INFORMATION
  Report Type: Report from Study
  Country: CA (occurrence: CA)
  Receive Date: 20210112
  Receipt Date: 20210112
  Transmission Date: 20210419
  Serious: Yes (Other)
  Sender: FDA-Public Use
  Company Number: CA-JNJFOC-20210104669

PATIENT
  Age: 7 Decade
  Sex: Male
  Weight: 68 kg

DRUGS (2)
  1. STELARA [Suspect]
     Active Substance: USTEKINUMAB
     Dosage: ON 03?JAN?2021, THE PATIENT RECEIVED 2ND USTEKINUMAB INFUSION FOR DOSE  90 MILLIGRAM
     Route: 058
  2. STELARA [Suspect]
     Active Substance: USTEKINUMAB
     Indication: COLITIS ULCERATIVE
     Route: 042
     Dates: start: 20201108

REACTIONS (5)
  - Frequent bowel movements [Not Recovered/Not Resolved]
  - Haematochezia [Unknown]
  - Drug ineffective [Unknown]
  - Paraesthesia [Unknown]
  - Skin discolouration [Unknown]

NARRATIVE: CASE EVENT DATE: 2020
